FAERS Safety Report 24664691 (Version 1)
Quarter: 2024Q4

REPORT INFORMATION
  Report Type: Spontaneous
  Country: US (occurrence: None)
  Receive Date: 20241125
  Receipt Date: 20241125
  Transmission Date: 20250115
  Serious: Yes (Death)
  Sender: Public
  Company Number: None

PATIENT
  Age: 62 Year
  Sex: Female

DRUGS (2)
  1. NUCALA [Suspect]
     Active Substance: MEPOLIZUMAB
     Dates: start: 20240405, end: 20241031
  2. TERIPARATIDE [Suspect]
     Active Substance: TERIPARATIDE
     Dates: start: 20240725, end: 20241031

REACTIONS (1)
  - Death [None]

NARRATIVE: CASE EVENT DATE: 20241031
